FAERS Safety Report 23210452 (Version 2)
Quarter: 2024Q1

REPORT INFORMATION
  Report Type: Report from Study
  Country: GB (occurrence: GB)
  Receive Date: 20231121
  Receipt Date: 20240326
  Transmission Date: 20240410
  Serious: Yes (Other)
  Sender: FDA-Public Use
  Company Number: GB-Vifor (International) Inc.-VIT-2023-09050

PATIENT
  Age: 76 Year
  Sex: Female
  Weight: 39.55 kg

DRUGS (34)
  1. AVACOPAN [Suspect]
     Active Substance: AVACOPAN
     Indication: Anti-neutrophil cytoplasmic antibody positive vasculitis
     Dosage: 30 MILLIGRAM
     Route: 048
     Dates: start: 20230712, end: 20230901
  2. AVACOPAN [Suspect]
     Active Substance: AVACOPAN
     Dosage: 20 MILLIGRAM
     Route: 048
     Dates: start: 20231007, end: 20231027
  3. AVACOPAN [Suspect]
     Active Substance: AVACOPAN
     Dosage: 10 MILLIGRAM
     Route: 048
     Dates: start: 20231027, end: 20240305
  4. AVACOPAN [Suspect]
     Active Substance: AVACOPAN
     Dosage: 10 MILLIGRAM
     Route: 048
     Dates: start: 20240308
  5. ARANESP [Concomitant]
     Active Substance: DARBEPOETIN ALFA
     Indication: Anaemia
     Dosage: 40 MICROGRAM
     Route: 058
     Dates: start: 20231028
  6. RITUXIMAB [Concomitant]
     Active Substance: RITUXIMAB
     Indication: Anti-neutrophil cytoplasmic antibody positive vasculitis
     Dosage: 1 GRAM (SINGLE IV INFUSION)
     Route: 042
     Dates: start: 20230711, end: 20230711
  7. RITUXIMAB [Concomitant]
     Active Substance: RITUXIMAB
     Dosage: 1 GRAM (SINGLE IV INFUSION)
     Route: 042
     Dates: start: 20230721, end: 20230721
  8. RITUXIMAB [Concomitant]
     Active Substance: RITUXIMAB
     Dosage: 1 GRAM (SINGLE IV INFUSION)
     Route: 042
     Dates: start: 20240223, end: 20240223
  9. METHYLPREDNISOLONE [Concomitant]
     Active Substance: METHYLPREDNISOLONE
     Indication: Anti-neutrophil cytoplasmic antibody positive vasculitis
     Dosage: 0.5 GRAM, QD (PLANNED DOSE COMPLETED)
     Route: 042
     Dates: start: 20230623, end: 20230626
  10. METHYLPREDNISOLONE [Concomitant]
     Active Substance: METHYLPREDNISOLONE
     Dosage: 0.1 GRAM (SINGLE IV INFUSION)
     Route: 042
     Dates: start: 20230711, end: 20230711
  11. METHYLPREDNISOLONE [Concomitant]
     Active Substance: METHYLPREDNISOLONE
     Dosage: 0.1 GRAM (SINGLE IV INFUSION)
     Route: 042
     Dates: start: 20230721, end: 20230721
  12. METHYLPREDNISOLONE [Concomitant]
     Active Substance: METHYLPREDNISOLONE
     Dosage: 100 MILLIGRAM (SINGLE IV INFUSION)
     Route: 042
     Dates: start: 20240223, end: 20240223
  13. PREDNISOLONE [Concomitant]
     Active Substance: PREDNISOLONE
     Indication: Anti-neutrophil cytoplasmic antibody positive vasculitis
     Dosage: UNK (TAPERING STEROID REGIME)
     Route: 048
     Dates: start: 20230627, end: 20230629
  14. PREDNISOLONE [Concomitant]
     Active Substance: PREDNISOLONE
     Dosage: UNK (STEROID TAPERING REGIME)
     Route: 048
     Dates: start: 20230630, end: 20230711
  15. PREDNISOLONE [Concomitant]
     Active Substance: PREDNISOLONE
     Dosage: UNK (STEROID TAPERING REGIME)
     Route: 048
     Dates: start: 20230712, end: 202307
  16. PREDNISOLONE [Concomitant]
     Active Substance: PREDNISOLONE
     Dosage: UNK (STEROID TAPERING REGIME)
     Route: 048
     Dates: start: 202307, end: 202308
  17. PREDNISOLONE [Concomitant]
     Active Substance: PREDNISOLONE
     Dosage: UNK (STEROID TAPERING REGIME)
     Route: 048
     Dates: start: 202308, end: 202308
  18. PREDNISOLONE [Concomitant]
     Active Substance: PREDNISOLONE
     Dosage: UNK (STEROID TAPERING REGIME)
     Route: 048
     Dates: start: 202308, end: 202308
  19. AMLODIPINE [Concomitant]
     Active Substance: AMLODIPINE BESYLATE
     Indication: Hypertension
     Dosage: UNK
     Route: 048
     Dates: start: 20231006
  20. BECLOMETHASONE\FORMOTEROL [Concomitant]
     Active Substance: BECLOMETHASONE\FORMOTEROL
     Indication: Bronchiectasis
     Dosage: 2 DOSAGE FORM, QD (2 PUFF)
     Dates: start: 20221017
  21. CARBOCYSTEINE [Concomitant]
     Active Substance: CARBOCYSTEINE
     Indication: Bronchiectasis
     Dosage: 7.5 GRAM, QD
     Route: 048
     Dates: start: 20141014
  22. COTRIMOXAZOLE [Concomitant]
     Active Substance: SULFAMETHOXAZOLE\TRIMETHOPRIM
     Indication: Prophylaxis
     Dosage: 4.8 GRAM (DAILY ON MONDAY, WEDNESDAY AND FRIDAY)
     Dates: start: 20230714
  23. ENTECAVIR [Concomitant]
     Active Substance: ENTECAVIR
     Indication: Hepatitis B
     Dosage: 0.5 MILLIGRAM, QWK
     Route: 048
     Dates: start: 20230712
  24. FLUTICASONE [Concomitant]
     Active Substance: FLUTICASONE
     Indication: Sneezing
     Dosage: UNK (1 SPRAY PER NOSTRIL)
     Route: 045
     Dates: start: 20230109
  25. LANSOPRAZOLE [Concomitant]
     Active Substance: LANSOPRAZOLE
     Indication: Gastrointestinal disorder prophylaxis
     Dosage: UNK
     Route: 048
     Dates: start: 20230709
  26. POLYETHYLENE GLYCOLS [Concomitant]
     Active Substance: POLYETHYLENE GLYCOLS
     Indication: Constipation
     Dosage: UNK (1 SACHET DAILY)
     Route: 048
     Dates: start: 20230516
  27. ALBUTEROL [Concomitant]
     Active Substance: ALBUTEROL
     Indication: Bronchiectasis
     Dosage: 2 DOSAGE FORM (2 PUFF)
     Dates: start: 20230627
  28. SODIUM BICARBONATE [Concomitant]
     Active Substance: SODIUM BICARBONATE
     Indication: Excessive cerumen production
     Dosage: 2 DOSAGE FORM, QD (2 PUFF)
     Dates: start: 20230627
  29. SODIUM BICARBONATE [Concomitant]
     Active Substance: SODIUM BICARBONATE
     Indication: Gastrooesophageal reflux disease
     Dosage: 1 GRAM, QD
     Route: 048
     Dates: start: 20230627
  30. SODIUM CHLORIDE [Concomitant]
     Active Substance: SODIUM CHLORIDE
     Indication: Bronchiectasis
     Dosage: UNK (3% NEBULISER)
     Route: 065
     Dates: start: 20210709
  31. Braltus zonda [Concomitant]
     Indication: Bronchiectasis
     Dosage: UNK
     Dates: start: 20171218
  32. ACETAMINOPHEN [Concomitant]
     Active Substance: ACETAMINOPHEN
     Indication: Pain
     Dosage: UNK (6 HOURLY AS NEEDED)
     Route: 048
     Dates: start: 20230628
  33. ACETAMINOPHEN [Concomitant]
     Active Substance: ACETAMINOPHEN
     Dosage: ONCE
     Dates: start: 20240223, end: 20240223
  34. CHLORPHENIRAMINE MALEATE [Concomitant]
     Active Substance: CHLORPHENIRAMINE MALEATE
     Indication: Premedication
     Dosage: 10 MILLIGRAM (SINGLE INFUSION)
     Route: 042
     Dates: start: 20240223, end: 20240223

REACTIONS (6)
  - Neutropenia [Recovered/Resolved]
  - Viral infection [Recovered/Resolved]
  - Abdominal pain [Recovered/Resolved]
  - Cold sweat [Recovered/Resolved]
  - Neutrophil count decreased [Unknown]
  - Nausea [Recovered/Resolved]

NARRATIVE: CASE EVENT DATE: 20230901
